FAERS Safety Report 8537134-6 (Version None)
Quarter: 2012Q3

REPORT INFORMATION
  Report Type: 
  Country: None (occurrence: None)
  Receive Date: 20120725
  Receipt Date: 20070720
  Transmission Date: 20120928
  Serious: Yes (Other)
  Sender: FDA-Public Use
  Company Number: CO-PFIZER INC-2012178778

PATIENT
  Age: 67 Year
  Sex: Female

DRUGS (3)
  1. LIPITOR [Suspect]
     Dosage: 10 MG, ONCE DAILY
  2. ACCURETIC [Suspect]
     Dosage: [QUINAPRIL HCL 20 MG]/ [HYDROCHLOROTHIAZIDE 12.5 MG] ONCE DAILY
  3. NORVASC [Suspect]
     Dosage: 5 MG, ONCE DAILY

REACTIONS (4)
  - TYPE V HYPERLIPIDAEMIA [None]
  - HYPERTENSIVE EMERGENCY [None]
  - BACK PAIN [None]
  - ACUTE MYOCARDIAL INFARCTION [None]
